FAERS Safety Report 7473942-0 (Version None)
Quarter: 2011Q2

REPORT INFORMATION
  Report Type: 
  Country: None (occurrence: None)
  Receive Date: 20110511
  Receipt Date: 20080220
  Transmission Date: 20111010
  Serious: Yes (Other)
  Sender: FDA-Public Use
  Company Number: US-BAYER-2011-008443

PATIENT
  Age: 47 Year
  Sex: Male
  Weight: 132 kg

DRUGS (5)
  1. TRASYLOL [Suspect]
     Indication: CORONARY ARTERY BYPASS
     Dosage: UNK
     Dates: start: 20030709
  2. PROTAMINE SULFATE [Concomitant]
  3. LABETALOL [Concomitant]
     Dosage: 200MG 2 TABLETS IN AFTERNOON AND TWO TABLETS AT NIGHT
     Route: 048
  4. INDOCIN [INDOMETACIN SODIUM] [Concomitant]
     Dosage: 25 MG, QD
     Route: 048
  5. HEPARIN [Concomitant]

REACTIONS (10)
  - ASCITES [None]
  - FEAR [None]
  - RENAL FAILURE ACUTE [None]
  - ANXIETY [None]
  - RENAL FAILURE [None]
  - INJURY [None]
  - UNEVALUABLE EVENT [None]
  - PAIN [None]
  - EMOTIONAL DISTRESS [None]
  - DEPRESSION [None]
